FAERS Safety Report 9223112 (Version 1)
Quarter: 2013Q2

REPORT INFORMATION
  Report Type: Spontaneous
  Country: BR (occurrence: BR)
  Receive Date: 20130410
  Receipt Date: 20130410
  Transmission Date: 20140414
  Serious: Yes (Other)
  Sender: FDA-Public Use
  Company Number: PHHY2013BR032414

PATIENT
  Age: 28 Year
  Sex: Female

DRUGS (4)
  1. RITALINA [Suspect]
     Indication: ATTENTION DEFICIT/HYPERACTIVITY DISORDER
     Dosage: 1.5 DF (10 MG), DAILY
     Route: 048
  2. RITALINA [Interacting]
     Dosage: 1 DF, DAILY
     Route: 048
     Dates: start: 2011
  3. ESCITALOPRAM [Interacting]
     Indication: DEPRESSION
     Dosage: 1 DF, DAILY
     Route: 048
     Dates: start: 2011
  4. ANTIDEPRESSANTS [Interacting]
     Indication: ANXIETY

REACTIONS (3)
  - Norepinephrine increased [Not Recovered/Not Resolved]
  - Anxiety [Not Recovered/Not Resolved]
  - Drug interaction [Unknown]
